FAERS Safety Report 21141847 (Version 1)
Quarter: 2022Q3

REPORT INFORMATION
  Report Type: Spontaneous
  Country: US (occurrence: None)
  Receive Date: 20220727
  Receipt Date: 20220727
  Transmission Date: 20221026
  Serious: Yes (Death)
  Sender: FDA-Public Use
  Company Number: None

PATIENT
  Age: 83 Year
  Sex: Male

DRUGS (14)
  1. NOURIANZ [Suspect]
     Active Substance: ISTRADEFYLLINE
     Dosage: FREQUENCY : DAILY;?
     Route: 048
     Dates: start: 20220519, end: 20220720
  2. AMLODIPINE BESYLATE [Concomitant]
     Active Substance: AMLODIPINE BESYLATE
  3. CARBIDOPA/LEVODOPA 25-100MG TABS [Concomitant]
  4. COLACE 100MG CAPSULES [Concomitant]
  5. LEXAPRO 10MG TABLETS [Concomitant]
  6. METOPROLOL TARTRATE 50MG TABLETS [Concomitant]
  7. MIRALAX 3350 POWDER PACKETS 12 [Concomitant]
  8. OXYCONTIN 40MG CONTROLLED REL TABS [Concomitant]
  9. PREDNISONE [Concomitant]
     Active Substance: PREDNISONE
  10. SENNA 8.6MG TABLETS [Concomitant]
  11. XARELTO [Concomitant]
     Active Substance: RIVAROXABAN
  12. ZOFRAN 4MG TABLETS [Concomitant]
  13. ZOLPIDEM [Concomitant]
     Active Substance: ZOLPIDEM TARTRATE
  14. VALIUM 10MG TABLETS [Concomitant]

REACTIONS (1)
  - Death [None]

NARRATIVE: CASE EVENT DATE: 20220720
